FAERS Safety Report 14137228 (Version 12)
Quarter: 2018Q4

REPORT INFORMATION
  Report Type: Spontaneous
  Country: CA (occurrence: CA)
  Receive Date: 20171027
  Receipt Date: 20181015
  Transmission Date: 20190204
  Serious: Yes (Hospitalization, Other)
  Sender: FDA-Public Use
  Company Number: CA-CELLTRION INC.-2017CA013943

PATIENT

DRUGS (24)
  1. INFLECTRA [Suspect]
     Active Substance: INFLIXIMAB-DYYB
     Dosage: 10 MG/KG, CYCLIC (EVERY 0, 2, 6 WEEKS, THEN EVERY 6 WEEKS)
     Route: 042
     Dates: start: 20170930, end: 20171114
  2. INFLECTRA [Suspect]
     Active Substance: INFLIXIMAB-DYYB
     Dosage: 600 MG, CYCLIC (EVERY 6 WEEKS)
     Route: 042
     Dates: start: 20180206
  3. ACETAMINOPHEN. [Concomitant]
     Active Substance: ACETAMINOPHEN
     Dosage: UNK
     Dates: start: 20180614
  4. INFLECTRA [Suspect]
     Active Substance: INFLIXIMAB-DYYB
     Indication: CROHN^S DISEASE
     Dosage: 300 MG,(EVERY 0, 2, 6 WEEKS, THEN EVERY 8 WEEKS)
     Route: 042
     Dates: start: 20170814
  5. INFLECTRA [Suspect]
     Active Substance: INFLIXIMAB-DYYB
     Dosage: 600 MG, CYCLIC (EVERY 6 WEEKS)
     Route: 042
     Dates: start: 20180322
  6. INFLECTRA [Suspect]
     Active Substance: INFLIXIMAB-DYYB
     Dosage: 600 MG, CYCLIC (EVERY 6 WEEKS)
     Route: 042
     Dates: start: 20180614
  7. PREDNISONE. [Concomitant]
     Active Substance: PREDNISONE
     Dosage: 400 MG, 1X/DAY
     Route: 048
     Dates: start: 20170715
  8. INFLECTRA [Suspect]
     Active Substance: INFLIXIMAB-DYYB
     Dosage: 600 MG, CYCLIC (EVERY 6 WEEKS)
     Route: 042
     Dates: start: 20180726
  9. INFLECTRA [Suspect]
     Active Substance: INFLIXIMAB-DYYB
     Dosage: 600 MG, CYCLIC (EVERY 6 WEEKS)
     Route: 042
     Dates: start: 20180906, end: 20180906
  10. SALBUTAMOL [Concomitant]
     Active Substance: ALBUTEROL
     Dosage: UNK, AS NEEDED
     Route: 065
  11. INFLECTRA [Suspect]
     Active Substance: INFLIXIMAB-DYYB
     Dosage: 10 MG/KG, UNK
     Route: 065
     Dates: start: 20171019
  12. INFLECTRA [Suspect]
     Active Substance: INFLIXIMAB-DYYB
     Dosage: 469 MG, CYCLIC (2,6 WEEKS THEN EVERY 6 WEEKS)
     Route: 042
     Dates: start: 20171114, end: 20171114
  13. INFLECTRA [Suspect]
     Active Substance: INFLIXIMAB-DYYB
     Dosage: 600 MG, CYCLIC (EVERY 6 WEEKS)
     Route: 042
     Dates: start: 20180503
  14. ZINC. [Concomitant]
     Active Substance: ZINC
     Dosage: UNK UNK, DAILY
     Route: 065
  15. AZATHIOPRINE. [Concomitant]
     Active Substance: AZATHIOPRINE
     Dosage: UNK
     Dates: start: 2017
  16. INFLECTRA [Suspect]
     Active Substance: INFLIXIMAB-DYYB
     Dosage: 5 MG/KG, UNK
     Route: 065
  17. INFLECTRA [Suspect]
     Active Substance: INFLIXIMAB-DYYB
     Dosage: 600 MG, CYCLIC (EVERY 6 WEEKS)
     Route: 042
     Dates: start: 20180614
  18. INFLECTRA [Suspect]
     Active Substance: INFLIXIMAB-DYYB
     Dosage: 600 MG, CYCLIC (EVERY 6 WEEKS)
     Route: 042
     Dates: start: 20180726
  19. IRON [Concomitant]
     Active Substance: IRON
     Dosage: 28 MG, 1X/DAY
     Route: 048
  20. VITAMIN B12 [Concomitant]
     Active Substance: CYANOCOBALAMIN
     Dosage: UNK, 1X/DAY
     Route: 048
  21. FLOVENT [Concomitant]
     Active Substance: FLUTICASONE PROPIONATE
     Dosage: UNK, AS NEEDED
     Route: 065
  22. INFLECTRA [Suspect]
     Active Substance: INFLIXIMAB-DYYB
     Dosage: 600 MG, CYCLIC (THEN EVERY 6 WEEKS)
     Route: 042
     Dates: start: 20171222
  23. INFLECTRA [Suspect]
     Active Substance: INFLIXIMAB-DYYB
     Dosage: 600 MG, CYCLIC (EVERY 6 WEEKS)
     Route: 042
     Dates: start: 20180906
  24. VITAMIN D                          /00107901/ [Concomitant]
     Active Substance: ERGOCALCIFEROL
     Dosage: UNK, 1X/DAY
     Route: 065

REACTIONS (11)
  - Systemic lupus erythematosus [Recovered/Resolved]
  - Pain [Unknown]
  - Heart rate irregular [Unknown]
  - Product use issue [Recovered/Resolved]
  - Gastroenteritis viral [Recovered/Resolved]
  - Influenza [Recovered/Resolved]
  - Drug effect incomplete [Unknown]
  - Abdominal pain [Recovering/Resolving]
  - Arthralgia [Unknown]
  - Insomnia [Unknown]
  - Condition aggravated [Unknown]

NARRATIVE: CASE EVENT DATE: 20171215
